FAERS Safety Report 4903680-7 (Version None)
Quarter: 2006Q1

REPORT INFORMATION
  Report Type: 
  Country: None (occurrence: None)
  Receive Date: 20060208
  Receipt Date: 20060127
  Transmission Date: 20060701
  Serious: Yes (Hospitalization)
  Sender: FDA-Public Use
  Company Number: US-AVENTIS-200611056US

PATIENT
  Sex: Male

DRUGS (3)
  1. LOVENOX [Suspect]
     Indication: CEREBROVASCULAR ACCIDENT
  2. PLAVIX [Suspect]
     Indication: CEREBROVASCULAR ACCIDENT
     Dosage: DOSE: UNK
  3. ASPIRIN [Suspect]
     Indication: CEREBROVASCULAR ACCIDENT
     Dosage: DOSE: UNK

REACTIONS (6)
  - CARDIAC FAILURE [None]
  - CHEST PAIN [None]
  - HAEMOGLOBIN DECREASED [None]
  - MELAENA [None]
  - MYOCARDIAL ISCHAEMIA [None]
  - ULCER HAEMORRHAGE [None]
